FAERS Safety Report 8289674-5 (Version None)
Quarter: 2012Q2

REPORT INFORMATION
  Report Type: 
  Country: None (occurrence: None)
  Receive Date: 20120417
  Receipt Date: 20120410
  Transmission Date: 20120825
  Serious: Yes (Other)
  Sender: FDA-Public Use
  Company Number: US-BAYER-2012-036016

PATIENT
  Age: 54 Year
  Sex: Male
  Weight: 45.578 kg

DRUGS (12)
  1. CRESTOR [Concomitant]
     Dosage: 10 MG, UNK
     Route: 048
  2. NORVASC [Concomitant]
  3. HYZAAR [Concomitant]
     Route: 048
  4. INSULIN [INSULIN] [Concomitant]
     Dosage: UNK
     Dates: start: 20050919
  5. ANCEF [Concomitant]
     Dosage: 1 G, UNK
     Route: 042
     Dates: start: 20050919
  6. VERSED [Concomitant]
     Dosage: 10 MG, UNK
     Route: 042
     Dates: start: 20050919
  7. NOVOLOG [Concomitant]
     Dosage: 10 U, BID
     Route: 058
  8. TRICOR [Concomitant]
     Dosage: 145 MG, UNK
     Route: 048
  9. PROTAMINE SULFATE [Concomitant]
     Dosage: 525 MG, UNK
     Route: 042
     Dates: start: 20050919
  10. ACTOS [Concomitant]
     Dosage: 45 MG, UNK
     Route: 048
  11. HEPARIN [Concomitant]
     Dosage: 10000 U, UNK
     Route: 042
     Dates: start: 20050919
  12. TRASYLOL [Suspect]
     Indication: CORONARY ARTERY BYPASS
     Dosage: 100 ML PUMP PRIME AND 400 ML INFUSION OVER 2.5 HOURS.
     Route: 042
     Dates: start: 20050919, end: 20050919

REACTIONS (2)
  - RENAL FAILURE CHRONIC [None]
  - RENAL FAILURE [None]
